FAERS Safety Report 5782319-5 (Version None)
Quarter: 2008Q2

REPORT INFORMATION
  Report Type: 
  Country: None (occurrence: None)
  Receive Date: 20080623
  Receipt Date: 20080603
  Transmission Date: 20081010
  Serious: No
  Sender: FDA-Public Use
  Company Number: US-BOEHRINGER INGELHEIM GMBH, GERMANY-2008-BP-08661BP

PATIENT
  Sex: Male

DRUGS (5)
  1. FLOMAX [Suspect]
     Indication: NOCTURIA
     Route: 048
     Dates: start: 20080501, end: 20080602
  2. ASPIRIN [Concomitant]
  3. B/P MEDS [Concomitant]
  4. CHOLESTEROL MEDS [Concomitant]
  5. HEART MEDS [Concomitant]

REACTIONS (2)
  - CONSTIPATION [None]
  - NOCTURIA [None]
